FAERS Safety Report 5119109-2 (Version None)
Quarter: 2006Q3

REPORT INFORMATION
  Report Type: 
  Country: None (occurrence: None)
  Receive Date: 20060926
  Receipt Date: 20060912
  Transmission Date: 20061208
  Serious: Yes (Hospitalization)
  Sender: FDA-Public Use
  Company Number: THQ2006A00865

PATIENT
  Age: 73 Year
  Sex: Female

DRUGS (2)
  1. ACTOS [Suspect]
     Indication: DIABETES MELLITUS
     Dosage: 30 + 15 MG PER ORAL
     Route: 048
     Dates: start: 20051001, end: 20060301
  2. ACTOS [Suspect]
     Indication: DIABETES MELLITUS
     Dosage: 30 + 15 MG PER ORAL
     Route: 048
     Dates: start: 20060301

REACTIONS (2)
  - CARDIAC FAILURE [None]
  - MYOCARDIAL ISCHAEMIA [None]
